FAERS Safety Report 9225439 (Version 2)
Quarter: 2013Q2

REPORT INFORMATION
  Report Type: Report from Study
  Country: DE (occurrence: DE)
  Receive Date: 20130411
  Receipt Date: 20130503
  Transmission Date: 20140414
  Serious: Yes (Death)
  Sender: FDA-Public Use
  Company Number: DE-ROCHE-1208785

PATIENT
  Sex: Female

DRUGS (1)
  1. ALTEPLASE [Suspect]
     Indication: ISCHAEMIC STROKE
     Dosage: MAXIMUM OF 0.4 MG/KG
     Route: 042

REACTIONS (3)
  - Cerebral artery embolism [Fatal]
  - Pulmonary embolism [Fatal]
  - Peripheral embolism [Fatal]
